FAERS Safety Report 25540459 (Version 1)
Quarter: 2025Q3

REPORT INFORMATION
  Report Type: Spontaneous
  Country: US (occurrence: US)
  Receive Date: 20250710
  Receipt Date: 20250710
  Transmission Date: 20251020
  Serious: No
  Sender: INCYTE
  Company Number: US-EVENT-003276

PATIENT

DRUGS (2)
  1. OPZELURA [Suspect]
     Active Substance: RUXOLITINIB PHOSPHATE
     Indication: Dermatitis atopic
     Dosage: 1.5 PERCENT, BID
  2. OPZELURA [Suspect]
     Active Substance: RUXOLITINIB PHOSPHATE
     Route: 065

REACTIONS (2)
  - Product dose omission issue [Unknown]
  - Product physical consistency issue [Unknown]
